FAERS Safety Report 17071429 (Version 1)
Quarter: 2019Q4

REPORT INFORMATION
  Report Type: Spontaneous
  Country: US (occurrence: US)
  Receive Date: 20191125
  Receipt Date: 20191125
  Transmission Date: 20200122
  Serious: No
  Sender: FDA-Public Use
  Company Number: US-ROCHE-2286903

PATIENT
  Age: 11 Year
  Sex: Male

DRUGS (1)
  1. TAMIFLU [Suspect]
     Active Substance: OSELTAMIVIR PHOSPHATE
     Indication: INFLUENZA
     Route: 065

REACTIONS (6)
  - Visual impairment [Unknown]
  - Speech disorder [Unknown]
  - Unevaluable event [Unknown]
  - Vomiting [Unknown]
  - Nausea [Unknown]
  - Hallucination [Unknown]
